FAERS Safety Report 5844562-6 (Version None)
Quarter: 2008Q3

REPORT INFORMATION
  Report Type: 
  Country: None (occurrence: None)
  Receive Date: 20080814
  Receipt Date: 20080813
  Transmission Date: 20090109
  Serious: Yes (Death)
  Sender: FDA-Public Use
  Company Number: PHHO2003IT11855

PATIENT
  Sex: Male
  Weight: 86.5 kg

DRUGS (1)
  1. DONEPEZIL HCL [Suspect]
     Indication: DEMENTIA ALZHEIMER'S TYPE
     Dosage: UNSPECIFIED
     Route: 048
     Dates: start: 20020412, end: 20030917

REACTIONS (2)
  - ACUTE MYOCARDIAL INFARCTION [None]
  - NAUSEA [None]
